FAERS Safety Report 4570212-5 (Version None)
Quarter: 2005Q1

REPORT INFORMATION
  Report Type: 
  Country: None (occurrence: None)
  Receive Date: 20050126
  Receipt Date: 20050126
  Transmission Date: 20050727
  Serious: Yes (Hospitalization)
  Sender: FDA-Public Use
  Company Number: None

PATIENT
  Age: 58 Year
  Sex: Male
  Weight: 72 kg

DRUGS (2)
  1. MIDAZOLAM HCL [Suspect]
     Indication: LUMBAR PUNCTURE
     Dosage: 5 MG
     Dates: start: 20041117
  2. SILDENAFIL [Concomitant]

REACTIONS (3)
  - HYPOVENTILATION [None]
  - LETHARGY [None]
  - SOMNOLENCE [None]
